FAERS Safety Report 25036198 (Version 3)
Quarter: 2025Q1

REPORT INFORMATION
  Report Type: Spontaneous
  Country: CH (occurrence: CH)
  Receive Date: 20250304
  Receipt Date: 20250314
  Transmission Date: 20250408
  Serious: Yes (Other)
  Sender: TEVA
  Company Number: CH-TEVA-VS-3304213

PATIENT
  Age: 61 Year
  Sex: Male

DRUGS (8)
  1. CISPLATIN [Suspect]
     Active Substance: CISPLATIN
     Indication: Salivary gland cancer
     Route: 065
     Dates: start: 201708
  2. CISPLATIN [Suspect]
     Active Substance: CISPLATIN
     Indication: Salivary gland cancer
     Route: 065
     Dates: start: 201901
  3. TRASTUZUMAB [Suspect]
     Active Substance: TRASTUZUMAB
     Indication: Salivary gland cancer
     Route: 065
     Dates: start: 2020
  4. GOSERELIN ACETATE [Suspect]
     Active Substance: GOSERELIN ACETATE
     Indication: Salivary gland cancer
     Route: 065
     Dates: start: 202009
  5. BICALUTAMIDE [Suspect]
     Active Substance: BICALUTAMIDE
     Indication: Salivary gland cancer
     Route: 065
     Dates: start: 202009
  6. PEMETREXED [Suspect]
     Active Substance: PEMETREXED
     Indication: Salivary gland cancer
     Route: 065
     Dates: start: 201708
  7. PEMETREXED [Suspect]
     Active Substance: PEMETREXED
     Indication: Salivary gland cancer
     Route: 065
     Dates: start: 201901
  8. NIVOLUMAB [Suspect]
     Active Substance: NIVOLUMAB
     Indication: Salivary gland cancer
     Route: 065
     Dates: start: 201807

REACTIONS (2)
  - Drug ineffective [Unknown]
  - Hot flush [Unknown]
